FAERS Safety Report 24165119 (Version 1)
Quarter: 2024Q3

REPORT INFORMATION
  Report Type: Spontaneous
  Country: GB (occurrence: GB)
  Receive Date: 20240802
  Receipt Date: 20240802
  Transmission Date: 20241017
  Serious: Yes (Other)
  Sender: TEVA
  Company Number: GB-MHRA-TPP32198888C7841440YC1721657755162

PATIENT
  Age: 58 Year
  Sex: Female
  Weight: 81 kg

DRUGS (16)
  1. BACLOFEN [Suspect]
     Active Substance: BACLOFEN
     Indication: Ill-defined disorder
     Dosage: DOSE FORM REPORTED: TPP YC - PLEASE RECLASSIFY
     Route: 065
     Dates: start: 20240719
  2. BACLOFEN [Concomitant]
     Active Substance: BACLOFEN
     Indication: Ill-defined disorder
     Dosage: IN THE EVENING, DOSE FORM REPORTED: TPP YC - PLEASE RECLASSIFY,
     Dates: start: 20240525, end: 20240622
  3. ATORVASTATIN [Concomitant]
     Active Substance: ATORVASTATIN
     Indication: Ill-defined disorder
     Dosage: DOSE FORM REPORTED: TPP YC - PLEASE RECLASSIFY
     Dates: start: 20230509
  4. CETIRIZINE [Concomitant]
     Active Substance: CETIRIZINE HYDROCHLORIDE
     Indication: Ill-defined disorder
     Dosage: PLEASE CONSI..., DOSE FORM REPORTED: TPP YC - PLEASE RECLASSIFY
     Dates: start: 20240702
  5. COCODAMOL [Concomitant]
     Active Substance: ACETAMINOPHEN\CODEINE PHOSPHATE
     Indication: Ill-defined disorder
     Dosage: TAKE ONE OR TWO CAPSULES UPTO FOUR TIMES DAILY ..., DOSE FORM REPORTED: TPP YC - PLEASE RECLASSIFY,
     Dates: start: 20240517, end: 20240529
  6. DICLOFENAC DIETHYLAMINE [Concomitant]
     Active Substance: DICLOFENAC DIETHYLAMINE
     Indication: Ill-defined disorder
     Dosage: APPLY 3 TIMES/DAY, DOSE FORM REPORTED: TPP YC - PLEASE RECLASSIFY,
     Dates: start: 20240517, end: 20240614
  7. BECLOMETHASONE\FORMOTEROL [Concomitant]
     Active Substance: BECLOMETHASONE\FORMOTEROL
     Indication: Ill-defined disorder
     Dosage: INHALE ONE PUFF QUICK AND DEEP, TWICE DAILY (LO..., DOSE FORM REPORTED: TPP YC - PLEASE RECLASSIFY
     Route: 055
     Dates: start: 20240702
  8. ACETAMINOPHEN [Concomitant]
     Active Substance: ACETAMINOPHEN
     Indication: Ill-defined disorder
     Dosage: TAKE UP TO TWO TABLETS 4 TIMES/DAY, DOSE FORM REPORTED: TPP YC - PLEASE RECLASSIFY,
     Dates: start: 20240628, end: 20240710
  9. INDAPAMIDE [Concomitant]
     Active Substance: INDAPAMIDE
     Indication: Ill-defined disorder
     Dosage: EACH MORNING, DOSE FORM REPORTED: TPP YC - PLEASE RECLASSIFY
     Dates: start: 20230509
  10. SUMATRIPTAN [Concomitant]
     Active Substance: SUMATRIPTAN
     Indication: Ill-defined disorder
     Dosage: AS DIRECTED FOR HEADACHE. DOSE MAY BE REPEATED AFTER AT LEAST 2 HOURS IF MIGRAINE RECURS; MAX. 30...
     Dates: start: 20240719
  11. AMLODIPINE [Concomitant]
     Active Substance: AMLODIPINE BESYLATE
     Indication: Ill-defined disorder
     Dosage: DOSE FORM REPORTED: TPP YC - PLEASE RECLASSIFY
     Dates: start: 20230509
  12. SERTRALINE [Concomitant]
     Active Substance: SERTRALINE HYDROCHLORIDE
     Indication: Ill-defined disorder
     Dosage: OD, DOSE FORM REPORTED: TPP YC - PLEASE RECLASSIFY
     Dates: start: 20230509
  13. BECLOMETHASONE DIPROPIONATE [Concomitant]
     Active Substance: BECLOMETHASONE DIPROPIONATE
     Indication: Ill-defined disorder
     Dosage: PUFFS,  VIA SPACER (LOW DO..., DOSE FORM REPORTED: TPP YC - PLEASE RECLASSIFY
     Route: 055
     Dates: start: 20230509
  14. METFORMIN [Concomitant]
     Active Substance: METFORMIN HYDROCHLORIDE
     Indication: Ill-defined disorder
     Dosage: DOSE FORM REPORTED: TPP YC - PLEASE RECLASSIFY
     Dates: start: 20230613
  15. SENNA [Concomitant]
     Active Substance: SENNA LEAF\SENNOSIDES\SENNOSIDES A AND B
     Indication: Ill-defined disorder
     Dosage: CAN TAKE TWO TABLETS DAILY, DOSE FORM REPORTED: TPP YC - PLEASE RECLASSIFY
     Dates: start: 20240628
  16. PREGABALIN [Concomitant]
     Active Substance: PREGABALIN
     Indication: Ill-defined disorder
     Dosage: AT NIGHT, DOSE FORM REPORTED: TPP YC - PLEASE RECLASSIFY,
     Dates: start: 20240517, end: 20240614

REACTIONS (1)
  - Swelling face [Recovered/Resolved]

NARRATIVE: CASE EVENT DATE: 20240722
